FAERS Safety Report 6273933-1 (Version None)
Quarter: 2009Q3

REPORT INFORMATION
  Report Type: 
  Country: None (occurrence: None)
  Receive Date: 20090720
  Receipt Date: 20090709
  Transmission Date: 20100115
  Serious: Yes (Other)
  Sender: FDA-Public Use
  Company Number: US-MERCK-0903USA01374

PATIENT
  Age: 58 Year
  Sex: Female

DRUGS (3)
  1. FOSAMAX [Suspect]
     Indication: OSTEOPOROSIS
     Route: 048
     Dates: start: 20010101, end: 20080101
  2. FOSAMAX [Suspect]
     Route: 048
     Dates: start: 20010801
  3. FOSAMAX [Suspect]
     Route: 048
     Dates: start: 20050901

REACTIONS (9)
  - ABSCESS [None]
  - ADVERSE EVENT [None]
  - FISTULA [None]
  - IMPAIRED HEALING [None]
  - ORAL INFECTION [None]
  - OSTEOMYELITIS [None]
  - OSTEONECROSIS [None]
  - PARAESTHESIA [None]
  - PERIODONTITIS [None]
